FAERS Safety Report 5209277-6 (Version None)
Quarter: 2006Q4

REPORT INFORMATION
  Report Type: 
  Country: None (occurrence: None)
  Receive Date: 20061101
  Receipt Date: 20060616
  Transmission Date: 20070319
  Serious: No
  Sender: FDA-Public Use
  Company Number: 2006PV012970

PATIENT
  Age: 66 Year
  Sex: Female
  Weight: 136.0791 kg

DRUGS (15)
  1. SYMLIN [Suspect]
     Indication: DIABETES MELLITUS NON-INSULIN-DEPENDENT
     Dosage: SEE IMAGE
     Route: 058
     Dates: start: 20051001, end: 20060401
  2. SYMLIN [Suspect]
     Indication: DIABETES MELLITUS NON-INSULIN-DEPENDENT
     Dosage: SEE IMAGE
     Route: 058
     Dates: start: 20060401, end: 20060427
  3. SYMLIN [Suspect]
     Indication: DIABETES MELLITUS NON-INSULIN-DEPENDENT
     Dosage: SEE IMAGE
     Route: 058
     Dates: start: 20060428, end: 20060428
  4. SYMLIN [Suspect]
     Indication: DIABETES MELLITUS NON-INSULIN-DEPENDENT
     Dosage: SEE IMAGE
     Route: 058
     Dates: start: 20060429, end: 20060501
  5. LANTUS [Concomitant]
  6. AMARYL [Concomitant]
  7. NOVOLOG [Concomitant]
  8. LORTAB [Concomitant]
  9. VOLTARAN [Concomitant]
  10. FLEXERIL [Concomitant]
  11. CORTISONE SHOTS [Concomitant]
  12. ALBUTEROL [Concomitant]
  13. BREATHINE [Concomitant]
  14. L-ARGININE [Concomitant]
  15. QUININE [Concomitant]

REACTIONS (3)
  - FEELING HOT [None]
  - MEDICATION ERROR [None]
  - TREMOR [None]
